FAERS Safety Report 6862166-3 (Version None)
Quarter: 2010Q3

REPORT INFORMATION
  Report Type: 
  Country: None (occurrence: None)
  Receive Date: 20100721
  Receipt Date: 20100714
  Transmission Date: 20110219
  Serious: Yes (Hospitalization)
  Sender: FDA-Public Use
  Company Number: IT-ASTRAZENECA-2010SE32931

PATIENT
  Age: 11225 Day
  Sex: Female

DRUGS (7)
  1. SEROQUEL [Suspect]
     Indication: ACUTE PSYCHOSIS
     Route: 048
     Dates: start: 20100705, end: 20100706
  2. HALDOL [Suspect]
     Indication: ACUTE PSYCHOSIS
     Route: 048
     Dates: start: 20100629, end: 20100706
  3. ELOPRAM [Suspect]
     Indication: POSTPARTUM DEPRESSION
     Route: 048
     Dates: start: 20100629, end: 20100705
  4. AKINETON [Concomitant]
     Route: 048
  5. BROMAZEPAM [Concomitant]
     Route: 048
  6. LEVOTHYROXINE SODIUM [Concomitant]
     Route: 048
  7. DOSTINEX [Concomitant]
     Route: 048

REACTIONS (1)
  - HYPERTRANSAMINASAEMIA [None]
